FAERS Safety Report 7247882-6 (Version None)
Quarter: 2011Q1

REPORT INFORMATION
  Report Type: 
  Country: None (occurrence: None)
  Receive Date: 20110127
  Receipt Date: 20110114
  Transmission Date: 20110831
  Serious: Yes (Other)
  Sender: FDA-Public Use
  Company Number: JM-PFIZER INC-2011018717

PATIENT
  Age: 80 Year
  Sex: Female

DRUGS (2)
  1. PANTECTA [Suspect]
     Dosage: UNK
     Route: 042
     Dates: start: 20110114
  2. BARALGIN [Suspect]
     Dosage: UNK
     Dates: start: 20110114

REACTIONS (2)
  - CHEST DISCOMFORT [None]
  - WHEEZING [None]
